FAERS Safety Report 6804902-8 (Version None)
Quarter: 2010Q2

REPORT INFORMATION
  Report Type: 
  Country: None (occurrence: None)
  Receive Date: 20100628
  Receipt Date: 20070709
  Transmission Date: 20101027
  Serious: No
  Sender: FDA-Public Use
  Company Number: US-PFIZER INC-2007056122

PATIENT
  Sex: Female
  Weight: 61 kg

DRUGS (5)
  1. GENOTROPIN [Suspect]
     Indication: HYPOPITUITARISM
     Dates: end: 20061201
  2. SYNTHROID [Concomitant]
  3. LEVOXYL [Concomitant]
  4. DOSTINEX [Concomitant]
  5. LEXAPRO [Concomitant]

REACTIONS (2)
  - ARTHRALGIA [None]
  - MUSCULOSKELETAL DISCOMFORT [None]
